FAERS Safety Report 6539140-X (Version None)
Quarter: 2010Q1

REPORT INFORMATION
  Report Type: 
  Country: None (occurrence: None)
  Receive Date: 20100112
  Receipt Date: 20100103
  Transmission Date: 20100710
  Serious: Yes (Hospitalization)
  Sender: FDA-Public Use
  Company Number: 8052818

PATIENT
  Sex: Male
  Weight: 60.7 kg

DRUGS (3)
  1. CERTOLIZUMAB PEGOL [Suspect]
     Indication: CROHN'S DISEASE
     Dosage: (400 MG, -NR OF DOSES :3)(400 MG, ONCE MONTHLY)(400 MG, ONCE MONTHLY) ALL 3 SUBCUTANEOUS
     Route: 058
     Dates: start: 20040718, end: 20040815
  2. CERTOLIZUMAB PEGOL [Suspect]
     Indication: CROHN'S DISEASE
     Dosage: (400 MG, -NR OF DOSES :3)(400 MG, ONCE MONTHLY)(400 MG, ONCE MONTHLY) ALL 3 SUBCUTANEOUS
     Route: 058
     Dates: start: 20040912, end: 20041229
  3. CERTOLIZUMAB PEGOL [Suspect]
     Indication: CROHN'S DISEASE
     Dosage: (400 MG, -NR OF DOSES :3)(400 MG, ONCE MONTHLY)(400 MG, ONCE MONTHLY) ALL 3 SUBCUTANEOUS
     Route: 058
     Dates: start: 20050130

REACTIONS (3)
  - ABDOMINAL ABSCESS [None]
  - FISTULA [None]
  - SEPSIS [None]
